FAERS Safety Report 9596545 (Version 1)
Quarter: 2013Q4

REPORT INFORMATION
  Report Type: Spontaneous
  Country: US (occurrence: US)
  Receive Date: 20131004
  Receipt Date: 20131004
  Transmission Date: 20140711
  Serious: Yes (Other)
  Sender: FDA-Public Use
  Company Number: US-PFIZER INC-2013282656

PATIENT
  Age: 59 Year
  Sex: Male
  Weight: 63.49 kg

DRUGS (3)
  1. CHANTIX [Suspect]
     Indication: SMOKING CESSATION THERAPY
     Dosage: UNK
     Dates: start: 2009
  2. CHANTIX [Suspect]
     Dosage: UNK
     Dates: start: 2010, end: 2010
  3. HYDROCHLOROTHIAZIDE [Concomitant]
     Indication: HYPERTENSION
     Dosage: 12.5 MG, DAILY

REACTIONS (1)
  - Chronic obstructive pulmonary disease [Not Recovered/Not Resolved]
